FAERS Safety Report 9653281 (Version 4)
Quarter: 2014Q3

REPORT INFORMATION
  Report Type: Report from Study
  Country: DE (occurrence: DE)
  Receive Date: 20131029
  Receipt Date: 20140923
  Transmission Date: 20150326
  Serious: Yes (Death, Hospitalization)
  Sender: FDA-Public Use
  Company Number: PHHO2013DE013714

PATIENT

DRUGS (4)
  1. CERTICAN [Suspect]
     Active Substance: EVEROLIMUS
     Indication: GRAFT VERSUS HOST DISEASE
     Dosage: 0.25 MG, BID
     Route: 048
     Dates: start: 20130923, end: 20131015
  2. PREDNISON [Suspect]
     Active Substance: PREDNISONE
     Indication: GRAFT VERSUS HOST DISEASE
     Dosage: 60-35 MG DAILY
     Dates: start: 20130920, end: 20131008
  3. PREDNISON [Suspect]
     Active Substance: PREDNISONE
     Dosage: 20 MG, DAILY
     Dates: start: 20131009, end: 20131105
  4. CERTICAN [Suspect]
     Active Substance: EVEROLIMUS
     Dosage: 0.5 MG, BID
     Route: 048
     Dates: start: 20131016, end: 20131106

REACTIONS (2)
  - Gastric haemorrhage [Fatal]
  - Cough [Not Recovered/Not Resolved]

NARRATIVE: CASE EVENT DATE: 20131004
